FAERS Safety Report 7611088-9 (Version None)
Quarter: 2011Q3

REPORT INFORMATION
  Report Type: 
  Country: None (occurrence: None)
  Receive Date: 20110715
  Receipt Date: 20110706
  Transmission Date: 20111222
  Serious: Yes (Hospitalization)
  Sender: FDA-Public Use
  Company Number: US-CELGENEUS-163-21880-11070664

PATIENT
  Sex: Male
  Weight: 59 kg

DRUGS (1)
  1. REVLIMID [Suspect]
     Indication: MULTIPLE MYELOMA
     Dosage: 15 MILLIGRAM
     Route: 048
     Dates: start: 20101124

REACTIONS (5)
  - DYSPNOEA [None]
  - OROPHARYNGEAL PAIN [None]
  - NEPHROLITHIASIS [None]
  - NASOPHARYNGITIS [None]
  - FATIGUE [None]
